FAERS Safety Report 9672300 (Version 1)
Quarter: 2013Q4

REPORT INFORMATION
  Report Type: Spontaneous
  Country: TW (occurrence: None)
  Receive Date: 20131105
  Receipt Date: 20131105
  Transmission Date: 20140711
  Serious: Yes (Hospitalization)
  Sender: FDA-Public Use
  Company Number: FK201304820

PATIENT
  Age: 1 Year
  Sex: Female
  Weight: 12 kg

DRUGS (2)
  1. CISPLATIN [Suspect]
     Indication: MEDULLOBLASTOMA
     Dosage: 5 CYCLES
  2. CYCLOPHOSPHAMIDE (MANUFACTURER UNKNOWN) (CYCLOPHOSPHAMIDE) (CYCLOPHOSPHAMIDE) [Suspect]
     Indication: MEDULLOBLASTOMA
     Dosage: 5 CYCLES

REACTIONS (8)
  - Coagulopathy [None]
  - Hepatic function abnormal [None]
  - Febrile neutropenia [None]
  - Septic shock [None]
  - Wound infection [None]
  - Prothrombin time prolonged [None]
  - Activated partial thromboplastin time prolonged [None]
  - Fibrin D dimer increased [None]
